FAERS Safety Report 6240680-1 (Version None)
Quarter: 2009Q2

REPORT INFORMATION
  Report Type: 
  Country: None (occurrence: None)
  Receive Date: 20090623
  Receipt Date: 20090109
  Transmission Date: 20091009
  Serious: No
  Sender: FDA-Public Use
  Company Number: US-ASTRAZENECA-2009UW00803

PATIENT
  Age: 73 Year
  Sex: Male
  Weight: 83.9 kg

DRUGS (11)
  1. PULMICORT RESPULES [Suspect]
     Indication: CHRONIC OBSTRUCTIVE PULMONARY DISEASE
     Route: 055
  2. ALBUTEROL [Concomitant]
  3. SPIRIVA [Concomitant]
  4. LANTUS [Concomitant]
  5. NOVOLOG [Concomitant]
  6. LASIX [Concomitant]
  7. LANOXIN [Concomitant]
  8. INSPRA [Concomitant]
  9. COREG [Concomitant]
  10. LISINOPRIL [Concomitant]
  11. SIMVASTATIN [Concomitant]

REACTIONS (1)
  - ABDOMINAL DISCOMFORT [None]
